FAERS Safety Report 5945279-X (Version None)
Quarter: 2008Q4

REPORT INFORMATION
  Report Type: 
  Country: None (occurrence: None)
  Receive Date: 20081107
  Receipt Date: 20081027
  Transmission Date: 20090506
  Serious: Yes (Other)
  Sender: FDA-Public Use
  Company Number: US-ELI_LILLY_AND_COMPANY-US200810006264

PATIENT
  Sex: Male

DRUGS (15)
  1. CYMBALTA [Suspect]
     Indication: BLOOD PRESSURE ABNORMAL
     Dosage: 60 MG, DAILY (1/D)
  2. VICODIN [Concomitant]
  3. FLORINEF [Concomitant]
  4. HYDROCORTISONE [Concomitant]
  5. ACIPHEX [Concomitant]
  6. ADDERALL 10 [Concomitant]
     Dosage: 10 MG, 2/D
  7. OMNISEPT [Concomitant]
  8. COREG [Concomitant]
     Dosage: UNK, 2/D
  9. MIDODRINE [Concomitant]
     Indication: ABDOMINAL PAIN
     Dosage: UNK, 3/D
  10. MIDRIN [Concomitant]
     Indication: MIGRAINE
  11. COENZYME A [Concomitant]
  12. MELATONIN [Concomitant]
  13. TYLENOL (CAPLET) [Concomitant]
  14. VITAMINS NOS [Concomitant]
  15. FAMOTIDINE [Concomitant]

REACTIONS (11)
  - ABDOMINAL PAIN UPPER [None]
  - ANGER [None]
  - CHEST PAIN [None]
  - HYPERSOMNIA [None]
  - HYPOVENTILATION [None]
  - INFLUENZA [None]
  - IRRITABILITY [None]
  - OESOPHAGEAL PAIN [None]
  - PNEUMONIA [None]
  - UNRESPONSIVE TO STIMULI [None]
  - URINE ODOUR ABNORMAL [None]
